FAERS Safety Report 8000155-6 (Version None)
Quarter: 2011Q4

REPORT INFORMATION
  Report Type: 
  Country: None (occurrence: None)
  Receive Date: 20111123
  Receipt Date: 20110902
  Transmission Date: 20120403
  Serious: Yes (Hospitalization)
  Sender: FDA-Public Use
  Company Number: 334536

PATIENT
  Age: 49 Year
  Sex: Male
  Weight: 147.4 kg

DRUGS (7)
  1. VICTOZA [Suspect]
     Indication: TYPE 2 DIABETES MELLITUS
     Dosage: , SUBCUTANEOUS
     Route: 058
     Dates: start: 20110501
  2. MAVIK [Concomitant]
  3. PROBENECID [Concomitant]
  4. CRESTOR [Concomitant]
  5. VICTOZA [Suspect]
     Dosage: 1.8 MG, QD SUBCUTANEOUS
     Route: 058
     Dates: end: 20110820
  6. TRICOR /00090101/(ADENOSINE) [Concomitant]
  7. ENTERIC COATED ACETYLSALICYLIC ACID [Concomitant]

REACTIONS (1)
  - PANCREATITIS ACUTE [None]
